FAERS Safety Report 7981490 (Version 2)
Quarter: 2012Q4

REPORT INFORMATION
  Report Type: 
  Country: CA (occurrence: CA)
  Receive Date: 20110608
  Receipt Date: 20121111
  Transmission Date: 20130627
  Serious: Yes (Death)
  Sender: FDA-Public Use
  Company Number: PHMT2006CA01468

PATIENT
  Age: 51 Year
  Sex: Male

DRUGS (4)
  1. SANDOSTATIN [Suspect]
     Route: 058
     Dates: start: 20060504
  2. SANDOSTATIN LAR [Suspect]
     Indication: HEPATIC NEOPLASM MALIGNANT
     Dosage: 20 mg, QMO
     Dates: start: 20060506, end: 20060603
  3. ALDACTONE [Concomitant]
  4. LASIX [Concomitant]

REACTIONS (4)
  - Death [Fatal]
  - Heart rate increased [Unknown]
  - Diarrhoea [Unknown]
  - Blood glucose increased [Unknown]
